FAERS Safety Report 13491872 (Version 6)
Quarter: 2017Q3

REPORT INFORMATION
  Report Type: Spontaneous
  Country: KR (occurrence: KR)
  Receive Date: 20170427
  Receipt Date: 20170825
  Transmission Date: 20171127
  Serious: Yes (Hospitalization, Other)
  Sender: FDA-Public Use
  Company Number: KR-009507513-1704KOR013398

PATIENT
  Age: 46 Year
  Sex: Female
  Weight: 57.7 kg

DRUGS (17)
  1. DEXAMETHASONE SODIUM PHOSPHATE. [Concomitant]
     Active Substance: DEXAMETHASONE SODIUM PHOSPHATE
     Dosage: 8 MG, QD. STRENGTH 5MG/ML
     Route: 042
     Dates: start: 20161022, end: 20161023
  2. EMEND (FOSAPREPITANT DIMEGLUMINE) [Suspect]
     Active Substance: FOSAPREPITANT DIMEGLUMINE
     Dosage: 150 MG, ONCE
     Route: 042
     Dates: start: 20161121, end: 20161121
  3. MACPERAN [Concomitant]
     Active Substance: METOCLOPRAMIDE HYDROCHLORIDE
     Indication: PROPHYLAXIS OF NAUSEA AND VOMITING
     Dosage: 5 MG, TID
     Route: 048
     Dates: start: 20161025, end: 20161122
  4. DEXAMETHASONE SODIUM PHOSPHATE. [Concomitant]
     Active Substance: DEXAMETHASONE SODIUM PHOSPHATE
     Dosage: 12 MG, ONCE. STRENGTH 5MG/ML
     Route: 042
     Dates: start: 20161121, end: 20161121
  5. NASERON [Concomitant]
     Indication: PREMEDICATION
     Dosage: 0.3 MG, ONCE (0.3 MG AMP)
     Route: 042
     Dates: start: 20161021, end: 20161021
  6. EMEND (FOSAPREPITANT DIMEGLUMINE) [Suspect]
     Active Substance: FOSAPREPITANT DIMEGLUMINE
     Indication: PROPHYLAXIS OF NAUSEA AND VOMITING
     Dosage: 150 MG, ONCE
     Route: 042
     Dates: start: 20161021, end: 20161021
  7. NASERON [Concomitant]
     Dosage: 0.3 MG, ONCE (0.3 MG AMP)
     Route: 042
     Dates: start: 20161121, end: 20161121
  8. MEIACT [Concomitant]
     Active Substance: CEFDITOREN PIVOXIL
     Indication: PROPHYLAXIS
     Dosage: 100 MG (1 TABLET), TID
     Route: 048
     Dates: start: 201610, end: 20161026
  9. NEXIUM [Concomitant]
     Active Substance: ESOMEPRAZOLE MAGNESIUM
     Indication: PROPHYLAXIS
     Dosage: 40 MG (1 TABLET), QD
     Route: 048
     Dates: start: 20161022, end: 20161026
  10. ULCERMIN [Concomitant]
     Active Substance: SUCRALFATE
     Indication: PROPHYLAXIS
     Dosage: 1 PK, TID. STRENGTH 1G/15ML
     Route: 048
     Dates: start: 20161021, end: 20161123
  11. CISPLATIN. [Concomitant]
     Active Substance: CISPLATIN
     Indication: NASOPHARYNGEAL CANCER
     Dosage: 96 MG, ONCE, CYCLE 1. STRENGTH: 50MG/100ML
     Route: 042
     Dates: start: 20161021, end: 20161021
  12. MUTERAN [Concomitant]
     Active Substance: ACETYLCYSTEINE
     Indication: COUGH
     Dosage: 200 MG (1 CAPSULE), TID
     Route: 048
     Dates: start: 201610, end: 20161026
  13. DEXAMETHASONE SODIUM PHOSPHATE. [Concomitant]
     Active Substance: DEXAMETHASONE SODIUM PHOSPHATE
     Indication: PREMEDICATION
     Dosage: 12 MG, ONCE. STRENGTH 5MG/ML
     Route: 042
     Dates: start: 20161021, end: 20161021
  14. DEXAMETHASONE SODIUM PHOSPHATE. [Concomitant]
     Active Substance: DEXAMETHASONE SODIUM PHOSPHATE
     Dosage: 8 MG, QD. STRENGTH 5MG/ML
     Route: 042
     Dates: start: 20161122, end: 20161124
  15. FLUOROURACIL. [Concomitant]
     Active Substance: FLUOROURACIL
     Dosage: 1185 MG, QD, CYCLE 2. STRENGTH 500MG/10ML
     Route: 042
     Dates: start: 20161121, end: 20161126
  16. CISPLATIN. [Concomitant]
     Active Substance: CISPLATIN
     Dosage: 96 MG, ONCE, CYCLE 2. STRENGTH: 50MG/100ML
     Route: 042
     Dates: start: 20161121, end: 20161121
  17. FLUOROURACIL. [Concomitant]
     Active Substance: FLUOROURACIL
     Indication: NASOPHARYNGEAL CANCER
     Dosage: 1185 MG, QD, CYCLE 1. STRENGTH 500MG/10ML
     Route: 042
     Dates: start: 20161021, end: 20161026

REACTIONS (9)
  - Hyponatraemia [Recovered/Resolved]
  - Mucosal inflammation [Recovered/Resolved]
  - Nausea [Recovered/Resolved]
  - Neuropathy peripheral [Recovered/Resolved]
  - Chills [Recovered/Resolved]
  - Myalgia [Recovered/Resolved]
  - Generalised tonic-clonic seizure [Recovered/Resolved]
  - Anxiety [Recovered/Resolved]
  - Vomiting [Recovered/Resolved]

NARRATIVE: CASE EVENT DATE: 201610
